FAERS Safety Report 6823412-5 (Version None)
Quarter: 2010Q3

REPORT INFORMATION
  Report Type: 
  Country: None (occurrence: None)
  Receive Date: 20100708
  Receipt Date: 20100628
  Transmission Date: 20110219
  Serious: Yes (Hospitalization)
  Sender: FDA-Public Use
  Company Number: GB-PFIZER INC-2010076966

PATIENT
  Age: 56 Year
  Sex: Female
  Weight: 74 kg

DRUGS (16)
  1. BLINDED *NO SUBJECT DRUG [Suspect]
     Indication: ASTHMA
     Dosage: UNK
     Route: 048
     Dates: start: 20100322, end: 20100611
  2. BLINDED *PLACEBO [Suspect]
     Indication: ASTHMA
     Dosage: UNK
     Route: 048
     Dates: start: 20100322, end: 20100611
  3. BLINDED VORICONAZOLE [Suspect]
     Indication: ASTHMA
     Dosage: UNK
     Route: 048
     Dates: start: 20100322, end: 20100611
  4. BLINDED *NO SUBJECT DRUG [Suspect]
     Indication: ASPERGILLOSIS
  5. BLINDED *PLACEBO [Suspect]
     Indication: ASPERGILLOSIS
  6. BLINDED VORICONAZOLE [Suspect]
     Indication: ASPERGILLOSIS
  7. SYMBICORT [Concomitant]
     Indication: ASTHMA
     Dosage: 2 DF, 2X/DAY
     Route: 055
  8. PAROXETINE [Concomitant]
     Indication: DEPRESSION
     Dosage: 20 MG, ALTERNATE DAY
     Route: 048
  9. BENDROFLUMETHIAZIDE [Concomitant]
     Indication: HYPERTENSION
     Dosage: 2.5 MG, ALTERNATE DAY
     Route: 048
  10. AZATHIOPRINE [Concomitant]
     Indication: ECZEMA
     Dosage: 125 MG, 1X/DAY
     Route: 048
  11. DOXAZOSIN [Concomitant]
     Indication: HYPERTENSION
     Dosage: 2 MG, 1X/DAY
     Route: 048
  12. UNIPHYLLIN ^NAPP^ [Concomitant]
     Dosage: 300 MG, 2X/DAY
  13. PREDNISOLONE [Concomitant]
     Dosage: 5 MG, UNK
  14. CETIRIZINE [Concomitant]
     Dosage: 10 MG, UNK
  15. LANSOPRAZOLE [Concomitant]
     Dosage: 30 MG, UNK
  16. CALCICHEW-D3 [Concomitant]
     Dosage: UNK

REACTIONS (1)
  - ACUTE CORONARY SYNDROME [None]
